FAERS Safety Report 8364293-0 (Version None)
Quarter: 2012Q2

REPORT INFORMATION
  Report Type: 
  Country: None (occurrence: None)
  Receive Date: 20120516
  Receipt Date: 20120508
  Transmission Date: 20120825
  Serious: Yes (Death, Hospitalization)
  Sender: FDA-Public Use
  Company Number: US-ACTELION-A-US2012-59521

PATIENT

DRUGS (3)
  1. ADCIRCA [Concomitant]
  2. OXYGEN [Concomitant]
  3. TRACLEER [Suspect]
     Indication: PULMONARY ARTERIAL HYPERTENSION
     Dosage: UNK
     Route: 048
     Dates: start: 20080722, end: 20120425

REACTIONS (9)
  - DYSPNOEA [None]
  - CORONARY ARTERY DISEASE [None]
  - HYPOTENSION [None]
  - TROPONIN INCREASED [None]
  - CONDITION AGGRAVATED [None]
  - DEATH [None]
  - DYSPNOEA EXERTIONAL [None]
  - HYPONATRAEMIA [None]
  - ASTHENIA [None]
